FAERS Safety Report 24959253 (Version 2)
Quarter: 2025Q2

REPORT INFORMATION
  Report Type: Report from Study
  Country: GB (occurrence: GB)
  Receive Date: 20250212
  Receipt Date: 20250418
  Transmission Date: 20250717
  Serious: No
  Sender: ABBVIE
  Company Number: GB-ABBVIE-6126239

PATIENT
  Sex: Female
  Weight: 48 kg

DRUGS (1)
  1. SKYRIZI [Suspect]
     Active Substance: RISANKIZUMAB-RZAA
     Indication: Crohn^s disease
     Route: 058

REACTIONS (2)
  - Injection site bruising [Recovered/Resolved]
  - Tension headache [Recovered/Resolved]
